FAERS Safety Report 7531592-1 (Version None)
Quarter: 2011Q2

REPORT INFORMATION
  Report Type: 
  Country: None (occurrence: None)
  Receive Date: 20110608
  Receipt Date: 20110530
  Transmission Date: 20111010
  Serious: Yes (Death, Other)
  Sender: FDA-Public Use
  Company Number: MX-SANOFI-AVENTIS-2011SA034100

PATIENT
  Age: 78 Year
  Sex: Female
  Weight: 85 kg

DRUGS (4)
  1. NPH INSULIN [Concomitant]
     Indication: TYPE 2 DIABETES MELLITUS
     Route: 065
     Dates: end: 20010101
  2. ALL OTHER THERAPEUTIC PRODUCTS [Concomitant]
     Indication: HYPERTENSION
     Route: 065
     Dates: end: 20110215
  3. LANTUS [Suspect]
     Indication: TYPE 2 DIABETES MELLITUS
     Route: 058
     Dates: start: 20010101, end: 20110101
  4. LANTUS [Suspect]
     Route: 058
     Dates: start: 20110101, end: 20110215

REACTIONS (5)
  - CARDIAC FAILURE CONGESTIVE [None]
  - HYPERGLYCAEMIA [None]
  - HYDRONEPHROSIS [None]
  - RESPIRATORY DISTRESS [None]
  - DIABETES MELLITUS INADEQUATE CONTROL [None]
